FAERS Safety Report 6840343-5 (Version None)
Quarter: 2010Q3

REPORT INFORMATION
  Report Type: 
  Country: None (occurrence: None)
  Receive Date: 20100713
  Receipt Date: 20100713
  Transmission Date: 20110219
  Serious: Yes (Other)
  Sender: FDA-Public Use
  Company Number: None

PATIENT
  Sex: Female
  Weight: 86.1834 kg

DRUGS (1)
  1. METHOTREXATE [Suspect]
     Indication: RHEUMATOID ARTHRITIS
     Dosage: 10 MG 1 A WEEK PO
     Route: 048
     Dates: start: 20100604, end: 20100625

REACTIONS (3)
  - ABASIA [None]
  - BONE PAIN [None]
  - MIGRAINE [None]
